FAERS Safety Report 8090721-4 (Version None)
Quarter: 2012Q1

REPORT INFORMATION
  Report Type: 
  Country: None (occurrence: None)
  Receive Date: 20120130
  Receipt Date: 20120123
  Transmission Date: 20120608
  Serious: Yes (Hospitalization)
  Sender: FDA-Public Use
  Company Number: IT-BAXTER-2011BH033763

PATIENT
  Age: 68 Year
  Sex: Male

DRUGS (6)
  1. STRONTIUM RANELATE [Concomitant]
     Indication: PRODUCT USED FOR UNKNOWN INDICATION
     Route: 048
  2. CYCLOPHOSPHAMIDE [Suspect]
     Indication: COLON CANCER
     Route: 048
     Dates: start: 20110915, end: 20111019
  3. XELODA [Suspect]
     Indication: COLON CANCER
     Route: 048
     Dates: start: 20110915, end: 20111019
  4. CYCLOPHOSPHAMIDE [Suspect]
     Indication: OFF LABEL USE
     Route: 048
     Dates: start: 20110915, end: 20111019
  5. DEXAMETHASONE [Concomitant]
     Indication: PRODUCT USED FOR UNKNOWN INDICATION
     Route: 065
  6. VITAMIN D [Concomitant]
     Indication: PRODUCT USED FOR UNKNOWN INDICATION
     Route: 048

REACTIONS (1)
  - ANGINA PECTORIS [None]
